FAERS Safety Report 9425062 (Version 1)
Quarter: 2013Q3

REPORT INFORMATION
  Report Type: Spontaneous
  Country: US (occurrence: US)
  Receive Date: 20130729
  Receipt Date: 20130729
  Transmission Date: 20140515
  Serious: Yes (Life-Threatening, Hospitalization)
  Sender: FDA-Public Use
  Company Number: US-GLAXOSMITHKLINE-A1034608A

PATIENT
  Age: 73 Year
  Sex: Male

DRUGS (5)
  1. ARZERRA [Suspect]
     Indication: CHRONIC LYMPHOCYTIC LEUKAEMIA
     Dosage: 2000MG SEE DOSAGE TEXT
     Route: 042
     Dates: start: 20130604
  2. ALLOPURINOL [Concomitant]
  3. ATENOLOL [Concomitant]
  4. MEGACE [Concomitant]
  5. ZOLOFT [Concomitant]

REACTIONS (2)
  - Pneumonia [Not Recovered/Not Resolved]
  - Malaise [Not Recovered/Not Resolved]
